FAERS Safety Report 21064865 (Version 1)
Quarter: 2022Q3

REPORT INFORMATION
  Report Type: Spontaneous
  Country: GB (occurrence: GB)
  Receive Date: 20220711
  Receipt Date: 20220711
  Transmission Date: 20221026
  Serious: Yes (Life-Threatening, Disabling, Other)
  Sender: FDA-Public Use
  Company Number: GB-MHRA-MED-202207021146442780-BQYCJ

PATIENT
  Age: 66 Year
  Sex: Male
  Weight: 44 kg

DRUGS (1)
  1. MORPHINE SULFATE [Suspect]
     Active Substance: MORPHINE SULFATE
     Indication: Adverse drug reaction
     Dosage: 20 MG AT NIGHT
     Route: 065
     Dates: start: 20220614, end: 20220614

REACTIONS (2)
  - Medication error [Unknown]
  - Sedation complication [Unknown]

NARRATIVE: CASE EVENT DATE: 20220615
